FAERS Safety Report 8541323-4 (Version None)
Quarter: 2012Q3

REPORT INFORMATION
  Report Type: 
  Country: None (occurrence: None)
  Receive Date: 20120726
  Receipt Date: 20120711
  Transmission Date: 20120928
  Serious: Yes (Hospitalization, Disabling, Other)
  Sender: FDA-Public Use
  Company Number: US-009507513-1203USA01080

PATIENT

DRUGS (40)
  1. BONIVA [Suspect]
     Dosage: 3 UNK, UNK
     Dates: start: 20090527
  2. DICYCLOMINE HYDROCHLORIDE [Concomitant]
     Indication: IRRITABLE BOWEL SYNDROME
     Dosage: UNK
     Dates: start: 20030801
  3. LAMICTAL [Concomitant]
     Indication: DEPRESSION
     Dosage: UNK
     Dates: start: 20040401, end: 20080301
  4. OXYCODONE HCL [Concomitant]
     Indication: PAIN
     Dosage: UNK
     Dates: start: 20010701, end: 20070601
  5. HYDROXYCHLOROQUINE SULFATE [Concomitant]
     Indication: SYSTEMIC LUPUS ERYTHEMATOSUS
     Dosage: UNK
     Dates: start: 20030901, end: 20050301
  6. VICODIN [Concomitant]
  7. BONIVA [Suspect]
     Indication: OSTEOPOROSIS
     Dosage: 150 MG/KG, UNK
     Dates: start: 20081202, end: 20110902
  8. BONIVA [Suspect]
     Dosage: 3 UNK, UNK
     Dates: start: 20070813, end: 20080225
  9. CYMBALTA [Concomitant]
     Indication: DEPRESSION
     Dosage: UNK
     Dates: start: 20050801
  10. KADIAN [Concomitant]
     Indication: PAIN
     Dosage: UNK
     Dates: start: 20040601, end: 20080801
  11. POTASSIUM CHLORIDE [Concomitant]
     Indication: GASTROOESOPHAGEAL REFLUX DISEASE
     Dosage: UNK
     Dates: start: 20050401, end: 20051201
  12. VIOXX [Concomitant]
     Indication: PAIN
     Dosage: UNK
     Dates: start: 20030226
  13. LIDODERM [Concomitant]
     Indication: PAIN
     Dosage: UNK
     Dates: start: 20050201, end: 20090401
  14. HUMIRA [Concomitant]
     Indication: ARTHRITIS
     Dosage: UNK
     Dates: start: 20040301, end: 20050401
  15. ARISTOSPAN [Concomitant]
     Indication: BURSITIS
  16. BONIVA [Suspect]
     Dosage: 3 UNK, UNK
     Dates: start: 20080523
  17. FLUVOXAMINE MALEATE [Concomitant]
     Indication: OBSESSIVE-COMPULSIVE DISORDER
     Dosage: UNK
     Dates: start: 20000501, end: 20090301
  18. MEDRIN (CEPHRADINE) [Concomitant]
     Indication: MIGRAINE
  19. RELAFIN [Concomitant]
     Indication: PAIN
  20. BONIVA [Suspect]
     Dosage: 3 UNK, UNK
     Dates: start: 20080924
  21. SEROQUEL [Concomitant]
     Indication: DEPRESSION
     Dosage: UNK
     Dates: start: 20050201, end: 20070701
  22. MIGRIN A [Concomitant]
     Indication: MIGRAINE
  23. CELESTONE [Concomitant]
     Indication: TENDINOUS CONTRACTURE
  24. CORTICOSTEROIDS (UNSPECIFIED) [Concomitant]
  25. BONIVA [Suspect]
     Indication: OSTEOPENIA
     Dosage: 150 MG, UNK
     Dates: start: 20060120, end: 20070717
  26. ACIPHEX [Concomitant]
     Indication: GASTROOESOPHAGEAL REFLUX DISEASE
     Dosage: UNK
     Dates: start: 20030501, end: 20070101
  27. CLONAZEPAM [Concomitant]
     Indication: PANIC ATTACK
  28. HYDROCODONE BITARTRATE [Concomitant]
     Indication: PAIN
     Dosage: UNK
     Dates: start: 20010501, end: 20090201
  29. BELLASPAS [Concomitant]
  30. ELAVIL [Concomitant]
     Indication: DEPRESSION
  31. HORMONES (UNSPECIFIED) [Concomitant]
  32. CARISOPRODOL [Concomitant]
     Indication: PAIN
     Dosage: UNK
     Dates: start: 20030901
  33. DARVOCET-N 50 [Concomitant]
     Indication: PAIN
  34. FOSAMAX [Suspect]
     Indication: BONE DENSITY DECREASED
     Dosage: 70 MG, QW
     Route: 048
     Dates: start: 20040823, end: 20051207
  35. FOSAMAX [Suspect]
     Indication: OSTEOPENIA
  36. AMBIEN [Concomitant]
     Indication: INSOMNIA
     Dosage: UNK
     Dates: start: 20000501, end: 20070501
  37. CODEINE SULFATE [Concomitant]
     Indication: PAIN
     Dosage: UNK
     Dates: start: 20050701
  38. CLONAZEPAM [Concomitant]
     Indication: GASTROOESOPHAGEAL REFLUX DISEASE
  39. DEPO-MEDROL [Concomitant]
     Indication: PAIN
  40. TRICOR [Concomitant]

REACTIONS (70)
  - DEBRIDEMENT [None]
  - SUICIDE ATTEMPT [None]
  - MENISCUS LESION [None]
  - HYPOTHYROIDISM [None]
  - CONDITION AGGRAVATED [None]
  - DRUG DEPENDENCE [None]
  - FUNGAL INFECTION [None]
  - ABDOMINAL PAIN [None]
  - LOW TURNOVER OSTEOPATHY [None]
  - FACIAL BONES FRACTURE [None]
  - SPINAL OSTEOARTHRITIS [None]
  - HEART RATE IRREGULAR [None]
  - SYNCOPE [None]
  - HYPOTENSION [None]
  - SCIATICA [None]
  - ANAEMIA POSTOPERATIVE [None]
  - BLOOD ALKALINE PHOSPHATASE INCREASED [None]
  - HIP SURGERY [None]
  - HEAD INJURY [None]
  - HYPERTENSION [None]
  - SINUS DISORDER [None]
  - DRUG TOLERANCE [None]
  - WOUND DEHISCENCE [None]
  - NAUSEA [None]
  - EPISTAXIS [None]
  - OSTEOMALACIA [None]
  - INTERVERTEBRAL DISC PROTRUSION [None]
  - OESOPHAGEAL DILATATION [None]
  - DIARRHOEA [None]
  - CONSTIPATION [None]
  - DRUG WITHDRAWAL SYNDROME [None]
  - ARTHRALGIA [None]
  - SPINAL COMPRESSION FRACTURE [None]
  - MUSCLE STRAIN [None]
  - URINARY TRACT INFECTION [None]
  - DIVERTICULUM [None]
  - CARDIAC DISORDER [None]
  - DYSPEPSIA [None]
  - NECK PAIN [None]
  - MUSCULOSKELETAL PAIN [None]
  - FEMUR FRACTURE [None]
  - PRESYNCOPE [None]
  - ROTATOR CUFF REPAIR [None]
  - INTERVERTEBRAL DISC OPERATION [None]
  - ARTHROSCOPY [None]
  - OSTEONECROSIS [None]
  - BONE DISORDER [None]
  - PAIN [None]
  - DEPRESSION [None]
  - MEMORY IMPAIRMENT [None]
  - OEDEMA PERIPHERAL [None]
  - DRUG INEFFECTIVE [None]
  - VOMITING [None]
  - CALCIUM DEFICIENCY [None]
  - VITAMIN D DEFICIENCY [None]
  - HEPATIC STEATOSIS [None]
  - BLOOD CHOLESTEROL INCREASED [None]
  - ANXIETY [None]
  - DYSPNOEA [None]
  - COLITIS [None]
  - LIGAMENT SPRAIN [None]
  - RASH PRURITIC [None]
  - VERTIGO [None]
  - HYPERPARATHYROIDISM [None]
  - LOSS OF CONSCIOUSNESS [None]
  - OVERWEIGHT [None]
  - FATIGUE [None]
  - SKIN INFECTION [None]
  - WOUND INFECTION [None]
  - BACK PAIN [None]
